FAERS Safety Report 25113872 (Version 1)
Quarter: 2025Q1

REPORT INFORMATION
  Report Type: Spontaneous
  Country: IT (occurrence: None)
  Receive Date: 20250323
  Receipt Date: 20250323
  Transmission Date: 20250408
  Serious: Yes (Disabling)
  Sender: FDA-CTU
  Company Number: None

PATIENT
  Age: 37 Year
  Sex: Male
  Weight: 80 kg

DRUGS (9)
  1. OLANZAPINE [Suspect]
     Active Substance: OLANZAPINE
     Indication: Anxiety
     Dosage: FREQUENCY : DAILY;?
     Route: 048
     Dates: start: 20200310
  2. OLANZAPINE [Suspect]
     Active Substance: OLANZAPINE
     Indication: Insomnia
  3. KLONOPIN [Concomitant]
     Active Substance: CLONAZEPAM
  4. MAGNESIUM [Concomitant]
     Active Substance: MAGNESIUM
  5. GABA [Concomitant]
     Active Substance: HOMEOPATHICS
  6. DIETARY SUPPLEMENT [Concomitant]
     Active Substance: DIETARY SUPPLEMENT
  7. ZINC [Concomitant]
     Active Substance: ZINC
  8. MELATONIN [Concomitant]
     Active Substance: MELATONIN
  9. OMEGA 3 [Concomitant]
     Active Substance: CAPSAICIN

REACTIONS (9)
  - Weight increased [None]
  - Metabolic syndrome [None]
  - Insulin resistance [None]
  - Cognitive disorder [None]
  - Anhedonia [None]
  - Emotional disorder [None]
  - Memory impairment [None]
  - Sexual dysfunction [None]
  - Withdrawal syndrome [None]
